FAERS Safety Report 8616353-4 (Version None)
Quarter: 2012Q3

REPORT INFORMATION
  Report Type: 
  Country: None (occurrence: None)
  Receive Date: 20120823
  Receipt Date: 20120810
  Transmission Date: 20120928
  Serious: No
  Sender: FDA-Public Use
  Company Number: US-ASTRAZENECA-2012SE57081

PATIENT
  Age: 534 Month
  Sex: Female
  Weight: 77.1 kg

DRUGS (3)
  1. SEROQUEL XR [Suspect]
     Dosage: 25 MG  BY TAKING 1/2 TABLET OF 50 MG, AT NIGHT
     Route: 048
     Dates: start: 20120601
  2. SEROQUEL XR [Suspect]
     Indication: SLEEP DISORDER THERAPY
     Route: 048
     Dates: start: 20120201, end: 20120601
  3. SEROQUEL XR [Suspect]
     Dosage: SPLIT TABLET TO 12.5 MG, TWO TIMES A DAY
     Route: 048

REACTIONS (4)
  - BACK PAIN [None]
  - ARTHRALGIA [None]
  - WEIGHT INCREASED [None]
  - OFF LABEL USE [None]
